FAERS Safety Report 19221258 (Version 5)
Quarter: 2021Q3

REPORT INFORMATION
  Report Type: Report from Study
  Country: KR (occurrence: KR)
  Receive Date: 20210505
  Receipt Date: 20210726
  Transmission Date: 20211014
  Serious: Yes (Hospitalization)
  Sender: FDA-Public Use
  Company Number: KR-ROCHE-2819212

PATIENT
  Age: 62 Year
  Sex: Male
  Weight: 58.9 kg

DRUGS (10)
  1. LOPMIN [Concomitant]
  2. XL184 [Suspect]
     Active Substance: CABOZANTINIB
     Route: 048
     Dates: start: 20210416, end: 20210417
  3. LEGALON [Concomitant]
     Active Substance: DIETARY SUPPLEMENT\HERBALS\MILK THISTLE
  4. INDENOL [Concomitant]
     Active Substance: PROPRANOLOL HYDROCHLORIDE
  5. TIROPA [Concomitant]
     Active Substance: TIROPRAMIDE
  6. ATEZOLIZUMAB. [Suspect]
     Active Substance: ATEZOLIZUMAB
     Indication: HEPATOCELLULAR CARCINOMA
     Dosage: ON 01/APR/2021, HE RECEIVED THE MOST RECENT DOSE OF ATEZOLIZUMAB PRIOR TO ONSET OF SERIOUS ADVERSE E
     Route: 042
     Dates: start: 20200507
  7. XL184 [Suspect]
     Active Substance: CABOZANTINIB
     Indication: HEPATOCELLULAR CARCINOMA
     Dosage: ON 05/APR/2021, HE RECEIVED MOST RECENT DOSE OF CABOZANTINIB (20 MG) PRIOR TO ONSET OF SERIOUS ADVER
     Route: 048
     Dates: start: 20200507
  8. URSODEOXYCHOLIC ACID [Concomitant]
     Active Substance: URSODIOL
  9. BEECOM [Concomitant]
  10. VIREAD [Concomitant]
     Active Substance: TENOFOVIR DISOPROXIL FUMARATE

REACTIONS (3)
  - Pleural effusion [Recovered/Resolved]
  - Mallory-Weiss syndrome [Recovered/Resolved]
  - Oesophageal haemorrhage [Recovered/Resolved]

NARRATIVE: CASE EVENT DATE: 20210406
